FAERS Safety Report 7505671-9 (Version None)
Quarter: 2011Q2

REPORT INFORMATION
  Report Type: 
  Country: None (occurrence: None)
  Receive Date: 20110526
  Receipt Date: 20110519
  Transmission Date: 20111010
  Serious: Yes (Life-Threatening, Hospitalization)
  Sender: FDA-Public Use
  Company Number: US-SANOFI-AVENTIS-F01200801168

PATIENT
  Age: 76 Year
  Sex: Male

DRUGS (5)
  1. ACETYLSALICYLIC ACID SRT [Concomitant]
     Dates: start: 20080110
  2. LOSARTAN POTASSIUM [Concomitant]
     Dates: start: 20080101
  3. ISOSORBIDE DINITRATE [Concomitant]
     Dosage: DOSE TEXT: 120 MG
     Dates: start: 20080110
  4. BISOPROLOL FUMARATE [Concomitant]
  5. ELIGARD [Suspect]
     Indication: PROSTATE CANCER
     Dosage: DOSE: 1 X /3 MONTHS CYCLICCYCLE 1 ADMINISTERED ON 16 APRIL 2007
     Route: 058
     Dates: start: 20070416, end: 20080327

REACTIONS (2)
  - ACUTE MYOCARDIAL INFARCTION [None]
  - ANGINA PECTORIS [None]
